FAERS Safety Report 13172540 (Version 12)
Quarter: 2018Q2

REPORT INFORMATION
  Report Type: Report from Study
  Country: US (occurrence: US)
  Receive Date: 20170131
  Receipt Date: 20180612
  Transmission Date: 20180711
  Serious: Yes (Hospitalization)
  Sender: FDA-Public Use
  Company Number: US-ACTELION-A-NJ2015-126361

PATIENT
  Age: 66 Year
  Sex: Female
  Weight: 41.72 kg

DRUGS (4)
  1. VELETRI [Suspect]
     Active Substance: EPOPROSTENOL
     Dosage: UNK
     Route: 042
  2. VELETRI [Suspect]
     Active Substance: EPOPROSTENOL
     Indication: PULMONARY ARTERIAL HYPERTENSION
     Dosage: 100 NG/KG, PER MIN
     Route: 042
     Dates: start: 20110427
  3. LETAIRIS [Concomitant]
     Active Substance: AMBRISENTAN
  4. ADCIRCA [Suspect]
     Active Substance: TADALAFIL
     Indication: PRODUCT USED FOR UNKNOWN INDICATION
     Route: 065

REACTIONS (47)
  - Chest discomfort [Unknown]
  - Pruritus [Unknown]
  - Fatigue [Not Recovered/Not Resolved]
  - Oxygen therapy [Unknown]
  - Paranasal sinus discomfort [Unknown]
  - Pain in extremity [Unknown]
  - Catheter site swelling [Unknown]
  - Cough [Recovering/Resolving]
  - Hypertension [Unknown]
  - Catheter management [Recovered/Resolved]
  - Urinary tract infection [Unknown]
  - Diarrhoea [Unknown]
  - Pain [Unknown]
  - Dizziness [Not Recovered/Not Resolved]
  - Abnormal loss of weight [Not Recovered/Not Resolved]
  - Anaemia [Unknown]
  - Myalgia [Unknown]
  - Catheter site pain [Unknown]
  - Drug administration error [Recovered/Resolved]
  - Hypotension [Not Recovered/Not Resolved]
  - Device breakage [Unknown]
  - Staphylococcus test positive [Recovered/Resolved]
  - Device connection issue [Unknown]
  - Rash [Unknown]
  - Asthenia [Recovered/Resolved]
  - Headache [Unknown]
  - Malaise [Unknown]
  - Vomiting [Unknown]
  - Weight decreased [Unknown]
  - Intervertebral disc protrusion [Unknown]
  - Feeding disorder [Unknown]
  - Device leakage [Unknown]
  - Device occlusion [Unknown]
  - Catheter site infection [Recovered/Resolved]
  - Pharyngitis streptococcal [Unknown]
  - Nausea [Recovered/Resolved]
  - Decreased appetite [Unknown]
  - Hypoaesthesia [Unknown]
  - Catheter site cellulitis [Recovered/Resolved]
  - Pain in jaw [Unknown]
  - Device dislocation [Unknown]
  - Dyspnoea exertional [Unknown]
  - Drug dose omission [Unknown]
  - Osteoporosis [Unknown]
  - Gastric disorder [Unknown]
  - Weight gain poor [Unknown]
  - Palpitations [Unknown]

NARRATIVE: CASE EVENT DATE: 20150930
